FAERS Safety Report 8195410-3 (Version None)
Quarter: 2012Q1

REPORT INFORMATION
  Report Type: 
  Country: None (occurrence: None)
  Receive Date: 20120308
  Receipt Date: 20120302
  Transmission Date: 20120608
  Serious: Yes (Hospitalization)
  Sender: FDA-Public Use
  Company Number: PHHY2012DE018951

PATIENT
  Age: 72 Year
  Sex: Male

DRUGS (3)
  1. MYCOPHENOLATE MOFETIL [Suspect]
     Indication: RHEUMATOID ARTHRITIS
     Dates: start: 20100901
  2. PREDNISOLONE [Concomitant]
     Dosage: 5 MG, UNK
  3. PREDNISOLONE [Concomitant]
     Dosage: 10 MG, UNK

REACTIONS (5)
  - PAIN [None]
  - GENERAL PHYSICAL HEALTH DETERIORATION [None]
  - PROCALCITONIN INCREASED [None]
  - INFLAMMATION [None]
  - BODY TEMPERATURE INCREASED [None]
